FAERS Safety Report 9421827 (Version 1)
Quarter: 2013Q3

REPORT INFORMATION
  Report Type: Report from Study
  Country: CA (occurrence: CA)
  Receive Date: 20130726
  Receipt Date: 20130726
  Transmission Date: 20140515
  Serious: Yes (Other)
  Sender: FDA-Public Use
  Company Number: PHHY2013CA078711

PATIENT
  Age: 67 Year
  Sex: Female

DRUGS (22)
  1. ACLASTA [Suspect]
     Indication: OSTEOPOROSIS POSTMENOPAUSAL
     Dosage: 5 MG/100ML
     Route: 042
     Dates: start: 20130719
  2. LYRICA [Concomitant]
  3. ACTONEL [Concomitant]
  4. RATIO-FENTANYL [Concomitant]
  5. PREDNISONE [Concomitant]
  6. D-TABS [Concomitant]
  7. ATIVAN [Concomitant]
  8. ARAVA [Concomitant]
  9. ESTRACE [Concomitant]
  10. SIMVASTATIN [Concomitant]
  11. NEXIUM 1-2-3 [Concomitant]
  12. SYNTHROID [Concomitant]
  13. VENLAFAXINE [Concomitant]
  14. MICARDIS [Concomitant]
  15. PMS-ATENOLOL [Concomitant]
  16. PMS-DOCUSATE SODIUM [Concomitant]
  17. PMS-SENNOSIDES [Concomitant]
  18. FORTEO [Concomitant]
  19. AVELOX [Concomitant]
  20. HYDROVAL [Concomitant]
  21. ZOSTRIX//CAPSAICIN [Concomitant]
  22. PMS-OXYCODONE [Concomitant]

REACTIONS (7)
  - Confusional state [Recovering/Resolving]
  - Movement disorder [Recovering/Resolving]
  - Somnolence [Recovering/Resolving]
  - Myalgia [Recovering/Resolving]
  - Burning sensation [Recovering/Resolving]
  - Pyrexia [Recovering/Resolving]
  - Muscle spasms [Recovering/Resolving]
